FAERS Safety Report 22062957 (Version 1)
Quarter: 2023Q1

REPORT INFORMATION
  Report Type: Spontaneous
  Country: US (occurrence: US)
  Receive Date: 20230306
  Receipt Date: 20230306
  Transmission Date: 20230417
  Serious: No
  Sender: FDA-Public Use
  Company Number: US-ELI_LILLY_AND_COMPANY-US202302009880

PATIENT
  Sex: Male

DRUGS (13)
  1. HUMALOG [Suspect]
     Active Substance: INSULIN LISPRO
     Indication: Diabetes mellitus
     Dosage: 15 U, EACH MORNING
     Route: 058
     Dates: start: 20221223
  2. HUMALOG [Suspect]
     Active Substance: INSULIN LISPRO
     Indication: Diabetes mellitus
     Dosage: 15 U, EACH MORNING
     Route: 058
     Dates: start: 20221223
  3. HUMALOG [Suspect]
     Active Substance: INSULIN LISPRO
     Dosage: 10 U, DAILY (BEFORE LUNCH)
     Route: 058
     Dates: start: 20221223
  4. HUMALOG [Suspect]
     Active Substance: INSULIN LISPRO
     Dosage: 10 U, DAILY (BEFORE LUNCH)
     Route: 058
     Dates: start: 20221223
  5. HUMALOG [Suspect]
     Active Substance: INSULIN LISPRO
     Dosage: 15 U, EACH EVENING
     Route: 058
     Dates: start: 20221223
  6. HUMALOG [Suspect]
     Active Substance: INSULIN LISPRO
     Dosage: 15 U, EACH EVENING
     Route: 058
     Dates: start: 20221223
  7. HUMALOG [Suspect]
     Active Substance: INSULIN LISPRO
     Dosage: 15 U, EACH MORNING
     Route: 058
  8. HUMALOG [Suspect]
     Active Substance: INSULIN LISPRO
     Dosage: 15 U, EACH MORNING
     Route: 058
  9. HUMALOG [Suspect]
     Active Substance: INSULIN LISPRO
     Dosage: 10 U, DAILY (BEFORE LUNCH)
     Route: 058
  10. HUMALOG [Suspect]
     Active Substance: INSULIN LISPRO
     Dosage: 10 U, DAILY (BEFORE LUNCH)
     Route: 058
  11. HUMALOG [Suspect]
     Active Substance: INSULIN LISPRO
     Dosage: 15 U, EACH EVENING
     Route: 058
  12. HUMALOG [Suspect]
     Active Substance: INSULIN LISPRO
     Dosage: 15 U, EACH EVENING
     Route: 058
  13. LANTUS [Concomitant]
     Active Substance: INSULIN GLARGINE
     Indication: Product used for unknown indication

REACTIONS (2)
  - Incorrect dose administered [Unknown]
  - Product storage error [Unknown]
